FAERS Safety Report 22619276 (Version 2)
Quarter: 2023Q2

REPORT INFORMATION
  Report Type: Spontaneous
  Country: US (occurrence: None)
  Receive Date: 20230620
  Receipt Date: 20230622
  Transmission Date: 20230721
  Serious: Yes (Hospitalization)
  Sender: FDA-Public Use
  Company Number: US-ROCHE-3370818

PATIENT
  Age: 64 Year
  Sex: Female
  Weight: 97.61 kg

DRUGS (14)
  1. GAVRETO [Suspect]
     Active Substance: PRALSETINIB
     Indication: Thyroid cancer
     Dosage: TAKE FOUR 100 MG CAPSULES FOR TOTAL DOSE OF 400 MG ONCE DAILY ON EMPTY STOMACH
     Route: 048
  2. DILAUDID [Concomitant]
     Active Substance: HYDROMORPHONE HYDROCHLORIDE
     Route: 048
  3. ROLAIDS [Concomitant]
     Active Substance: CALCIUM CARBONATE\MAGNESIUM HYDROXIDE
     Route: 048
  4. VALIUM [Concomitant]
     Active Substance: DIAZEPAM
     Route: 048
  5. LEVOTHYROXINE [Concomitant]
     Active Substance: LEVOTHYROXINE
     Route: 048
  6. LISINOPRIL [Concomitant]
     Active Substance: LISINOPRIL
     Route: 048
  7. MORPHINE [Concomitant]
     Active Substance: MORPHINE
     Route: 048
  8. ONDANSETRON [Concomitant]
     Active Substance: ONDANSETRON
     Route: 048
  9. TUMS [Concomitant]
     Active Substance: CALCIUM CARBONATE
     Route: 048
  10. ADVIL [Concomitant]
     Active Substance: IBUPROFEN
     Route: 048
  11. OXYCODONE [Concomitant]
     Active Substance: OXYCODONE
     Route: 048
  12. VITAMIN D3 [Concomitant]
     Active Substance: CHOLECALCIFEROL
     Route: 048
  13. VITAMINS [Concomitant]
     Active Substance: VITAMINS
     Route: 048
  14. MORPHINE [Concomitant]
     Active Substance: MORPHINE
     Route: 048

REACTIONS (2)
  - Diarrhoea [Unknown]
  - Off label use [Unknown]
